FAERS Safety Report 7525356-2 (Version None)
Quarter: 2011Q2

REPORT INFORMATION
  Report Type: 
  Country: None (occurrence: None)
  Receive Date: 20110526
  Receipt Date: 20110513
  Transmission Date: 20111010
  Serious: Yes (Hospitalization, Other)
  Sender: FDA-Public Use
  Company Number: 2011MA005894

PATIENT
  Age: 31 Year
  Sex: Male

DRUGS (1)
  1. RANITIDINE [Suspect]
     Dosage: 600 MG;PO
     Route: 048

REACTIONS (5)
  - SKIN TEST POSITIVE [None]
  - LOSS OF CONSCIOUSNESS [None]
  - ANAPHYLACTIC REACTION [None]
  - HYPOTENSION [None]
  - CONJUNCTIVITIS [None]
